FAERS Safety Report 5805538-8 (Version None)
Quarter: 2008Q3

REPORT INFORMATION
  Report Type: 
  Country: None (occurrence: None)
  Receive Date: 20080710
  Receipt Date: 20080415
  Transmission Date: 20090109
  Serious: No
  Sender: FDA-Public Use
  Company Number: US-BAYER-200820285NA

PATIENT
  Age: 29 Year
  Sex: Female
  Weight: 91 kg

DRUGS (2)
  1. YASMIN [Suspect]
     Indication: CONTRACEPTION
     Route: 048
     Dates: start: 20040101
  2. ASCORBIC ACID [Concomitant]
     Indication: MALAISE
     Route: 048

REACTIONS (2)
  - SPIDER VEIN [None]
  - VARICOSE VEIN [None]
